FAERS Safety Report 5004099-3 (Version None)
Quarter: 2006Q2

REPORT INFORMATION
  Report Type: 
  Country: None (occurrence: None)
  Receive Date: 20060511
  Receipt Date: 20060407
  Transmission Date: 20061013
  Serious: Yes (Disabling, Other)
  Sender: FDA-Public Use
  Company Number: 2006025737

PATIENT
  Age: 84 Year
  Sex: Male
  Weight: 90.7194 kg

DRUGS (5)
  1. LIPITOR [Suspect]
     Indication: BLOOD CHOLESTEROL INCREASED
     Dosage: 1 IN 1 D, ORAL
     Route: 048
     Dates: start: 20050501, end: 20051001
  2. FUROSEMIDE [Concomitant]
  3. QUINAPRIL [Concomitant]
  4. GLIPIZIDE [Concomitant]
  5. WARFARIN SODIUM [Concomitant]

REACTIONS (15)
  - ANION GAP DECREASED [None]
  - ASTHENIA [None]
  - BALANCE DISORDER [None]
  - BLOOD CALCIUM DECREASED [None]
  - BLOOD GLUCOSE INCREASED [None]
  - BLOOD SODIUM DECREASED [None]
  - BLOOD THYROID STIMULATING HORMONE INCREASED [None]
  - DIFFICULTY IN WALKING [None]
  - FALL [None]
  - HIGH DENSITY LIPOPROTEIN INCREASED [None]
  - KNEE ARTHROPLASTY [None]
  - MUSCLE CONTRACTIONS INVOLUNTARY [None]
  - MUSCULAR WEAKNESS [None]
  - PAIN IN EXTREMITY [None]
  - SPINAL OSTEOARTHRITIS [None]
